FAERS Safety Report 7577236-4 (Version None)
Quarter: 2011Q2

REPORT INFORMATION
  Report Type: 
  Country: None (occurrence: None)
  Receive Date: 20110621
  Receipt Date: 20110606
  Transmission Date: 20111010
  Serious: Yes (Congenital Anomaly, Other)
  Sender: FDA-Public Use
  Company Number: AUR-APL-2011-02790

PATIENT
  Sex: Male

DRUGS (2)
  1. LAMOTRIGINE [Suspect]
     Indication: PRODUCT USED FOR UNKNOWN INDICATION
     Dosage: (200 MG, TRANSPLACENTAL (250 MG), TRANSPLACENTAL
  2. ZOLPIDEM [Concomitant]

REACTIONS (3)
  - GASTROOESOPHAGEAL REFLUX DISEASE [None]
  - PILONIDAL CYST CONGENITAL [None]
  - MATERNAL DRUGS AFFECTING FOETUS [None]
